FAERS Safety Report 14640869 (Version 2)
Quarter: 2018Q3

REPORT INFORMATION
  Report Type: Spontaneous
  Country: CA (occurrence: CA)
  Receive Date: 20180315
  Receipt Date: 20180724
  Transmission Date: 20181010
  Serious: Yes (Other)
  Sender: FDA-Public Use
  Company Number: CA-009507513-1410CAN004563

PATIENT
  Sex: Female

DRUGS (3)
  1. INTRON A [Suspect]
     Active Substance: INTERFERON ALFA-2B
     Dosage: STRENGTH:PEN?DIN 2240693, 2240694, 18 MILLION IU, 3 TIMES PER WEEK
     Route: 058
  2. INTRON A [Suspect]
     Active Substance: INTERFERON ALFA-2B
     Indication: MALIGNANT MELANOMA
     Dosage: STRENGTH: 60 MIU PEN?DIN 2240695; DOSE 9 MILLION UNIT, MONDAY/WEDNESDAY/FRIDAY
     Route: 058
     Dates: start: 2013
  3. INTRON A [Suspect]
     Active Substance: INTERFERON ALFA-2B
     Dosage: STRENGTH: PEN?DIN 2240693, 2240695, 17 MILLION IU, 3 TIMES PER WEEK

REACTIONS (3)
  - Hepatic enzyme abnormal [Unknown]
  - Lung neoplasm malignant [Unknown]
  - Weight decreased [Unknown]
